FAERS Safety Report 25670524 (Version 2)
Quarter: 2025Q4

REPORT INFORMATION
  Report Type: Spontaneous
  Country: EU (occurrence: EU)
  Receive Date: 20250812
  Receipt Date: 20251007
  Transmission Date: 20260117
  Serious: Yes (Death, Other)
  Sender: FERRING
  Company Number: None

PATIENT

DRUGS (10)
  1. DESMOPRESSIN ACETATE [Suspect]
     Active Substance: DESMOPRESSIN ACETATE
     Indication: Product used for unknown indication
     Dosage: DOSE OF 25 MILLIGRAM EVERY 1 TOTAL(S)
     Route: 048
     Dates: start: 2024
  2. TERALITHE [Suspect]
     Active Substance: LITHIUM CARBONATE
     Indication: Bipolar disorder
     Dosage: 2.5 DOSAGE FORM, 1 TIME DAILY, IN THE EVENING
     Route: 048
     Dates: start: 2015
  3. IMOVANE [Suspect]
     Active Substance: ZOPICLONE
     Indication: Insomnia
     Dosage: 2 TABLETS OF 7.5 MG, REDUCED TO 1 TABLET DUE TO A STOCK SHORTAGE
     Route: 048
     Dates: start: 202505
  4. XANAX [Suspect]
     Active Substance: ALPRAZOLAM
     Indication: Product used for unknown indication
     Dosage: 0.5 MG TOTAL, 2-3 TIMES A DAY
     Route: 048
     Dates: start: 2025
  5. PHENERGAN [Concomitant]
     Active Substance: PROMETHAZINE HYDROCHLORIDE
     Indication: Product used for unknown indication
     Dosage: 25 MG TOTAL, 2 DF AT BEDTIME
     Route: 048
     Dates: start: 202503
  6. AMISULPRIDE [Concomitant]
     Active Substance: AMISULPRIDE
     Indication: Product used for unknown indication
     Dosage: 200 MG TOTAL, 1 DF IN THE MORNING AND IN THE EVENING
     Route: 048
     Dates: start: 2022
  7. VENLAFAXINE [Concomitant]
     Active Substance: VENLAFAXINE HYDROCHLORIDE
     Indication: Product used for unknown indication
     Dosage: 37.5 MG TOTAL, 1 CAPSULE PER DAY
     Route: 048
     Dates: start: 202504
  8. LAMICTAL [Concomitant]
     Active Substance: LAMOTRIGINE
     Indication: Product used for unknown indication
     Dosage: 200 MG TOTAL, DOSES GRADUALLY INCREASED
     Route: 048
     Dates: start: 2025
  9. METHYLPHENIDATE [Concomitant]
     Active Substance: METHYLPHENIDATE
     Indication: Product used for unknown indication
     Dosage: 20 MG TOTAL, 1 DF AT NOON
     Route: 048
     Dates: start: 2024
  10. METHYLPHENIDATE [Concomitant]
     Active Substance: METHYLPHENIDATE
     Dosage: 40 MG TOTAL, 1 DF IN THE EVENING
     Route: 048
     Dates: start: 2024

REACTIONS (11)
  - Intracranial pressure increased [Fatal]
  - Hyponatraemia [Fatal]
  - Intentional overdose [Fatal]
  - Cardio-respiratory arrest [Not Recovered/Not Resolved]
  - Coma [Not Recovered/Not Resolved]
  - Drug abuse [Unknown]
  - Anxiety [Unknown]
  - Confusional state [Unknown]
  - Disorientation [Unknown]
  - Hallucination, visual [Unknown]
  - Vomiting [Unknown]

NARRATIVE: CASE EVENT DATE: 20250705
